FAERS Safety Report 6717975-8 (Version None)
Quarter: 2010Q2

REPORT INFORMATION
  Report Type: 
  Country: None (occurrence: None)
  Receive Date: 20100510
  Receipt Date: 20100429
  Transmission Date: 20101027
  Serious: Yes (Other)
  Sender: FDA-Public Use
  Company Number: PHHY2010US20931

PATIENT
  Sex: Female

DRUGS (4)
  1. RECLAST [Suspect]
     Indication: OSTEOPOROSIS POSTMENOPAUSAL
     Dosage: 5MG/ 100 ML
     Route: 042
     Dates: start: 20100217
  2. CALCIUM WITH VITAMIN D [Concomitant]
     Indication: OSTEOPOROSIS
  3. VITAMINS [Concomitant]
  4. CHEMOTHERAPEUTICS NOS [Concomitant]

REACTIONS (9)
  - CONTUSION [None]
  - DARK CIRCLES UNDER EYES [None]
  - FEELING ABNORMAL [None]
  - INFLUENZA [None]
  - MALAISE [None]
  - PAIN [None]
  - PLATELET COUNT DECREASED [None]
  - SKIN DISCOLOURATION [None]
  - THROMBOCYTOPENIA [None]
